FAERS Safety Report 15700963 (Version 2)
Quarter: 2019Q1

REPORT INFORMATION
  Report Type: Spontaneous
  Country: JP (occurrence: JP)
  Receive Date: 20181207
  Receipt Date: 20190118
  Transmission Date: 20190417
  Serious: Yes (Hospitalization)
  Sender: FDA-Public Use
  Company Number: JP-ALLERGAN-1856633US

PATIENT
  Age: 30 Year
  Sex: Male

DRUGS (2)
  1. ESCITALOPRAM OXALATE - BP [Suspect]
     Active Substance: ESCITALOPRAM OXALATE
     Indication: PRODUCT USED FOR UNKNOWN INDICATION
     Dosage: OVERDOSE: 15 TABLETS
     Route: 048
  2. LUNESTA [Concomitant]
     Active Substance: ESZOPICLONE
     Dosage: 15 DF, UNK (OVERDOSE)
     Route: 048

REACTIONS (2)
  - Serotonin syndrome [Recovered/Resolved]
  - Overdose [Unknown]
